FAERS Safety Report 14071286 (Version 2)
Quarter: 2017Q4

REPORT INFORMATION
  Report Type: Spontaneous
  Country: US (occurrence: US)
  Receive Date: 20171010
  Receipt Date: 20171121
  Transmission Date: 20180321
  Serious: Yes (Hospitalization)
  Sender: FDA-Public Use
  Company Number: US-JNJFOC-20170715126

PATIENT
  Sex: Male

DRUGS (6)
  1. ATORVASTATIN [Concomitant]
     Active Substance: ATORVASTATIN
  2. IMBRUVICA [Suspect]
     Active Substance: IBRUTINIB
     Indication: CHRONIC LYMPHOCYTIC LEUKAEMIA
     Route: 048
     Dates: start: 20170105, end: 2017
  3. LOSARTAN. [Concomitant]
     Active Substance: LOSARTAN
  4. TRIAMCINOLONE [Concomitant]
     Active Substance: TRIAMCINOLONE
  5. IMBRUVICA [Suspect]
     Active Substance: IBRUTINIB
     Indication: CHRONIC LYMPHOCYTIC LEUKAEMIA
     Route: 048
     Dates: start: 2017
  6. HYOSCYAMINE. [Concomitant]
     Active Substance: HYOSCYAMINE

REACTIONS (9)
  - Cardiac disorder [Unknown]
  - Visual impairment [Unknown]
  - Dizziness [Unknown]
  - Anxiety [Unknown]
  - Abdominal discomfort [Unknown]
  - Balance disorder [Unknown]
  - Fatigue [Unknown]
  - Cholelithiasis [Unknown]
  - Depression [Unknown]

NARRATIVE: CASE EVENT DATE: 2017
